FAERS Safety Report 6069685-0 (Version None)
Quarter: 2009Q1

REPORT INFORMATION
  Report Type: 
  Country: None (occurrence: None)
  Receive Date: 20090209
  Receipt Date: 20090203
  Transmission Date: 20090719
  Serious: Yes (Death, Hospitalization)
  Sender: FDA-Public Use
  Company Number: RU-TEVA-184051ISR

PATIENT
  Sex: Female
  Weight: 56.5 kg

DRUGS (6)
  1. FLUOROURACIL [Suspect]
     Indication: COLORECTAL CANCER
     Route: 040
     Dates: start: 20080512, end: 20090104
  2. FLUOROURACIL [Suspect]
     Route: 041
     Dates: start: 20080512
  3. FOLINIC ACID [Suspect]
     Indication: COLORECTAL CANCER
     Route: 042
     Dates: start: 20080512, end: 20090104
  4. IRINOTECAN HYDROCHLORIDE [Suspect]
     Indication: COLORECTAL CANCER
     Route: 042
     Dates: start: 20080512, end: 20090104
  5. SUNITINIB MALATE (BLINDED THERAPY) [Suspect]
     Indication: COLORECTAL CANCER
     Route: 048
     Dates: start: 20080512, end: 20090104
  6. ONDANSETRON [Concomitant]
     Indication: VOMITING
     Dates: start: 20080512

REACTIONS (1)
  - PERITONITIS [None]
